FAERS Safety Report 4721099-9 (Version None)
Quarter: 2005Q3

REPORT INFORMATION
  Report Type: 
  Country: None (occurrence: None)
  Receive Date: 20050719
  Receipt Date: 20041111
  Transmission Date: 20060218
  Serious: Yes (Other)
  Sender: FDA-Public Use
  Company Number: 2004094316

PATIENT
  Age: 82 Year
  Sex: Female
  Weight: 56.246 kg

DRUGS (3)
  1. CELEBREX [Suspect]
     Indication: RHEUMATOID ARTHRITIS
     Dosage: 400 MG (200 MG,2 IN 1 D), ORAL
     Route: 048
  2. METHOTREXATE [Suspect]
     Indication: RHEUMATOID ARTHRITIS
     Dosage: (WK), ORAL
     Route: 048
  3. ASPIRIN [Concomitant]

REACTIONS (3)
  - IRON DEFICIENCY ANAEMIA [None]
  - STOMACH DISCOMFORT [None]
  - ULCER [None]
